FAERS Safety Report 24043669 (Version 2)
Quarter: 2024Q3

REPORT INFORMATION
  Report Type: Spontaneous
  Country: CN (occurrence: CN)
  Receive Date: 20240703
  Receipt Date: 20240726
  Transmission Date: 20241017
  Serious: Yes (Other)
  Sender: HETERO
  Company Number: CN-HETERO-HET2024CN01984

PATIENT
  Age: 78 Year
  Sex: Male

DRUGS (6)
  1. OSELTAMIVIR [Suspect]
     Active Substance: OSELTAMIVIR
     Indication: Influenza
     Dosage: 75 MILLIGRAM, TWICE DAILY
     Route: 048
     Dates: start: 20240611, end: 20240613
  2. OSELTAMIVIR [Suspect]
     Active Substance: OSELTAMIVIR
     Dosage: DOSE REDUCED
     Route: 065
  3. PIPERACILLIN AND TAZOBACTAM [Suspect]
     Active Substance: PIPERACILLIN SODIUM\TAZOBACTAM SODIUM
     Indication: Influenza
     Dosage: 4.5 GRAM, THREE TIMES A DAY
     Route: 041
     Dates: start: 20240609, end: 20240613
  4. PIPERACILLIN AND TAZOBACTAM [Suspect]
     Active Substance: PIPERACILLIN SODIUM\TAZOBACTAM SODIUM
     Indication: Pyrexia
  5. SODIUM CHLORIDE [Concomitant]
     Active Substance: SODIUM CHLORIDE
     Indication: Influenza
     Dosage: 100 MILLILITER, THREE TIMES A DAY
     Route: 041
     Dates: start: 20240609, end: 20240613
  6. SODIUM CHLORIDE [Concomitant]
     Active Substance: SODIUM CHLORIDE
     Indication: Pyrexia

REACTIONS (2)
  - Renal failure [Recovering/Resolving]
  - Nephrotic syndrome [Recovering/Resolving]

NARRATIVE: CASE EVENT DATE: 20240613
